FAERS Safety Report 24205604 (Version 1)
Quarter: 2024Q3

REPORT INFORMATION
  Report Type: Spontaneous
  Country: US (occurrence: None)
  Receive Date: 20240812
  Receipt Date: 20240812
  Transmission Date: 20241016
  Serious: Yes (Life-Threatening, Hospitalization)
  Sender: Public
  Company Number: None

PATIENT
  Age: 68 Year
  Sex: Female
  Weight: 74.25 kg

DRUGS (1)
  1. WHARTON JELLY DERIVED UMBILICAL CORD MESENCHYMAL STEM CELLS [Suspect]
     Active Substance: WHARTON JELLY DERIVED UMBILICAL CORD MESENCHYMAL STEM CELLS
     Indication: Rotator cuff syndrome
     Dates: start: 20220825, end: 20220825

REACTIONS (3)
  - Bronchitis [None]
  - Squamous cell carcinoma [None]
  - Illness [None]

NARRATIVE: CASE EVENT DATE: 20220825
